FAERS Safety Report 15795023 (Version 1)
Quarter: 2018Q4

REPORT INFORMATION
  Report Type: Spontaneous
  Country: US (occurrence: US)
  Receive Date: 20181213
  Receipt Date: 20181213
  Transmission Date: 20190205
  Serious: No
  Sender: FDA-Public Use
  Company Number: None

PATIENT
  Age: 65 Year
  Sex: Female

DRUGS (1)
  1. TENOFOVIR TAB 300MG [Suspect]
     Active Substance: TENOFOVIR
     Indication: HEPATITIS B
     Route: 048
     Dates: end: 201812

REACTIONS (2)
  - Hypertension [None]
  - Osteoporosis [None]

NARRATIVE: CASE EVENT DATE: 20181212
